FAERS Safety Report 20652697 (Version 1)
Quarter: 2022Q1

REPORT INFORMATION
  Report Type: Other
  Country: JP (occurrence: JP)
  Receive Date: 20220330
  Receipt Date: 20220330
  Transmission Date: 20220423
  Serious: Yes (Death, Hospitalization, Other)
  Sender: FDA-Public Use
  Company Number: JP-CHUGAI-2022009961AA

PATIENT
  Age: 74 Year
  Sex: Male
  Weight: 63.6 kg

DRUGS (3)
  1. OBINUTUZUMAB [Suspect]
     Active Substance: OBINUTUZUMAB
     Indication: Follicular lymphoma
     Dosage: 1000 MILLIGRAM, QD
     Route: 042
     Dates: start: 20210312, end: 20210312
  2. OBINUTUZUMAB [Suspect]
     Active Substance: OBINUTUZUMAB
     Dosage: 1000 MILLIGRAM, QD
     Route: 041
     Dates: start: 20210412, end: 20210412
  3. BENDAMUSTINE HYDROCHLORIDE [Suspect]
     Active Substance: BENDAMUSTINE HYDROCHLORIDE
     Indication: Follicular lymphoma
     Dosage: UNK
     Route: 041
     Dates: start: 20210315, end: 20210413

REACTIONS (7)
  - Staphylococcal bacteraemia [Fatal]
  - Rash [Unknown]
  - Cytomegalovirus enterocolitis [Recovering/Resolving]
  - Cellulitis [Recovering/Resolving]
  - Septic shock [Unknown]
  - Myelosuppression [Unknown]
  - Skin infection [Unknown]

NARRATIVE: CASE EVENT DATE: 20210430
